FAERS Safety Report 19893885 (Version 1)
Quarter: 2021Q3

REPORT INFORMATION
  Report Type: Spontaneous
  Country: None (occurrence: CO)
  Receive Date: 20210929
  Receipt Date: 20210929
  Transmission Date: 20211014
  Serious: Yes (Hospitalization, Other)
  Sender: FDA-Public Use
  Company Number: CO-COVIS PHARMA GMBH-2021COV24058

PATIENT
  Age: 71 Year
  Sex: Female

DRUGS (5)
  1. FLUCONAZOLE. [Suspect]
     Active Substance: FLUCONAZOLE
     Indication: ADVERSE EVENT
     Dosage: DAILY
     Route: 048
  2. HUMIRA [Suspect]
     Active Substance: ADALIMUMAB
     Dates: start: 20210315
  3. PRILOSEC [Suspect]
     Active Substance: OMEPRAZOLE MAGNESIUM
     Indication: PRODUCT USED FOR UNKNOWN INDICATION
     Route: 048
     Dates: start: 20210707, end: 20210707
  4. HUMIRA [Suspect]
     Active Substance: ADALIMUMAB
     Indication: RHEUMATOID ARTHRITIS
     Dosage: 40 MG/0.8 ML / DOSE TEXT: 40 MG (EVERY 15 DAYS) (SOLUTION FOR INJECTION IN PRE?FILLED PEN)
     Route: 058
     Dates: start: 20081128
  5. ATORVASTATIN CALCIUM. [Suspect]
     Active Substance: ATORVASTATIN CALCIUM
     Indication: PRODUCT USED FOR UNKNOWN INDICATION
     Dates: start: 20210706, end: 20210706

REACTIONS (13)
  - Malaise [Unknown]
  - Discharge [Unknown]
  - Weight decreased [Unknown]
  - Anaemia [Unknown]
  - Decreased appetite [Unknown]
  - Myocardial infarction [Unknown]
  - Haemorrhage [Unknown]
  - Kidney perforation [Unknown]
  - Pulmonary oedema [Unknown]
  - Postoperative wound infection [Unknown]
  - Fungal sepsis [Unknown]
  - Dysgeusia [Unknown]
  - Time perception altered [Unknown]
